FAERS Safety Report 10522889 (Version 3)
Quarter: 2014Q4

REPORT INFORMATION
  Report Type: Spontaneous
  Country: US (occurrence: None)
  Receive Date: 20141010
  Receipt Date: 20141112
  Transmission Date: 20150528
  Serious: Yes (Other)
  Sender: FDA-Public Use
  Company Number: ADR-2014-01846

PATIENT
  Age: 66 Year
  Sex: Male

DRUGS (2)
  1. MORPHINE INTRATHECAL [Suspect]
     Active Substance: MORPHINE
     Dosage: 0.9:, SEE B5
  2. BACLOFEN INTRATHECAL [Suspect]
     Active Substance: BACLOFEN
     Indication: MUSCLE SPASTICITY
     Dosage: ^99^; SEE B5

REACTIONS (8)
  - Wound [None]
  - Altered state of consciousness [None]
  - Accidental overdose [None]
  - Device alarm issue [None]
  - Ocular discomfort [None]
  - Infection [None]
  - Delayed recovery from anaesthesia [None]
  - Staphylococcal infection [None]

NARRATIVE: CASE EVENT DATE: 20140912
